FAERS Safety Report 7526681-1 (Version None)
Quarter: 2011Q2

REPORT INFORMATION
  Report Type: 
  Country: None (occurrence: None)
  Receive Date: 20110606
  Receipt Date: 20110602
  Transmission Date: 20111010
  Serious: Yes (Death, Other)
  Sender: FDA-Public Use
  Company Number: US-AMGEN-USASP2011027584

PATIENT
  Sex: Male
  Weight: 57.3 kg

DRUGS (6)
  1. AVASTIN [Concomitant]
     Dosage: 575 MG, Q2WK
     Route: 042
     Dates: start: 20100623, end: 20110406
  2. NPLATE [Suspect]
     Indication: IDIOPATHIC THROMBOCYTOPENIC PURPURA
     Dosage: 1 A?G/KG, QWK
     Dates: start: 20110413, end: 20110504
  3. DEXAMETHASONE [Concomitant]
     Dosage: 4 MG, QID
     Route: 048
     Dates: start: 20100610, end: 20110520
  4. IMATINIB MESYLATE [Concomitant]
     Dosage: 400 MG, QD
     Route: 048
     Dates: start: 20110323, end: 20110520
  5. HYDROXYUREA [Concomitant]
     Dosage: 500 MG, UNK
     Route: 048
     Dates: start: 20110323, end: 20110520
  6. KEPPRA [Concomitant]
     Dosage: 150 MG, BID
     Route: 048
     Dates: start: 20100610, end: 20110520

REACTIONS (1)
  - GLIOBLASTOMA MULTIFORME [None]
